FAERS Safety Report 8853225 (Version 3)
Quarter: 2012Q4

REPORT INFORMATION
  Report Type: 
  Country: US (occurrence: US)
  Receive Date: 20121023
  Receipt Date: 20121126
  Transmission Date: 20130627
  Serious: Yes (Other)
  Sender: FDA-Public Use
  Company Number: US-AMGEN-USASP2012066686

PATIENT
  Age: 57 Year
  Sex: Male
  Weight: 100.23 kg

DRUGS (5)
  1. ENBREL [Suspect]
     Indication: PSORIATIC ARTHROPATHY
     Dosage: 25 mg, q7-10d
     Route: 058
     Dates: start: 20030804, end: 20120809
  2. METHOTREXATE [Concomitant]
     Indication: PSORIATIC ARTHROPATHY
     Dosage: 12.5 mg, qwk
     Route: 048
     Dates: start: 20010424, end: 20120807
  3. PRAVACHOL [Concomitant]
     Indication: HYPERLIPIDAEMIA
     Dosage: 40 mg, qd
     Route: 048
  4. ZOLOFT [Concomitant]
     Indication: DEPRESSION
     Dosage: 50 mg, qd
     Route: 048
  5. ALEVE [Concomitant]
     Indication: PSORIATIC ARTHROPATHY
     Dosage: 220 mg, qd
     Route: 048
     Dates: end: 20120809

REACTIONS (2)
  - Non-Hodgkin^s lymphoma [Not Recovered/Not Resolved]
  - Arthralgia [Unknown]
